FAERS Safety Report 10452114 (Version 2)
Quarter: 2014Q3

REPORT INFORMATION
  Report Type: Spontaneous
  Country: US (occurrence: US)
  Receive Date: 20140915
  Receipt Date: 20140915
  Transmission Date: 20150326
  Serious: Yes (Other)
  Sender: FDA-Public Use
  Company Number: US-AMGEN-USASP2014067259

PATIENT
  Age: 78 Year
  Sex: Female

DRUGS (3)
  1. OMEPRAZOLE. [Concomitant]
     Active Substance: OMEPRAZOLE
     Indication: GASTRITIS
     Dosage: UNK
  2. MISOPROSTOL. [Concomitant]
     Active Substance: MISOPROSTOL
     Indication: GASTRITIS
     Dosage: UNK
  3. PROLIA [Suspect]
     Active Substance: DENOSUMAB
     Indication: OSTEOPOROSIS POSTMENOPAUSAL
     Dosage: UNK
     Route: 065

REACTIONS (5)
  - Influenza like illness [Recovered/Resolved]
  - Hyperchlorhydria [Unknown]
  - Gastric disorder [Unknown]
  - Impaired gastric emptying [Unknown]
  - Gastritis [Unknown]

NARRATIVE: CASE EVENT DATE: 201406
